FAERS Safety Report 14310547 (Version 8)
Quarter: 2018Q1

REPORT INFORMATION
  Report Type: Report from Study
  Country: US (occurrence: US)
  Receive Date: 20171220
  Receipt Date: 20180126
  Transmission Date: 20180509
  Serious: Yes (Other)
  Sender: FDA-Public Use
  Company Number: US-HLSUS-2017-US-000861

PATIENT
  Age: 67 Year
  Sex: Male

DRUGS (1)
  1. CLOZARIL [Suspect]
     Active Substance: CLOZAPINE

REACTIONS (3)
  - Pneumonia [Unknown]
  - Influenza [Unknown]
  - Neutropenia [Unknown]

NARRATIVE: CASE EVENT DATE: 20171212
